FAERS Safety Report 8116961-3 (Version None)
Quarter: 2012Q1

REPORT INFORMATION
  Report Type: 
  Country: None (occurrence: None)
  Receive Date: 20120206
  Receipt Date: 20120126
  Transmission Date: 20120608
  Serious: Yes (Other)
  Sender: FDA-Public Use
  Company Number: PL-ROCHE-1036988

PATIENT
  Sex: Female
  Weight: 82.083 kg

DRUGS (5)
  1. XOLAIR [Suspect]
     Dates: start: 20111229
  2. BISOPROLOL FUMARATE [Concomitant]
  3. LOZAP (POLAND) [Concomitant]
     Dates: start: 20080101
  4. POLOCARD [Concomitant]
     Dates: start: 20080101
  5. XOLAIR [Suspect]
     Indication: IDIOPATHIC URTICARIA
     Route: 058
     Dates: start: 20111201

REACTIONS (2)
  - ALOPECIA [None]
  - PARAESTHESIA [None]
